FAERS Safety Report 4886530-7 (Version None)
Quarter: 2006Q1

REPORT INFORMATION
  Report Type: 
  Country: None (occurrence: None)
  Receive Date: 20060120
  Receipt Date: 20051202
  Transmission Date: 20060701
  Serious: Yes (Hospitalization)
  Sender: FDA-Public Use
  Company Number: US-AVENTIS-200520127US

PATIENT
  Sex: Female

DRUGS (12)
  1. LANTUS [Suspect]
     Indication: DIABETES MELLITUS NON-INSULIN-DEPENDENT
     Dosage: DOSE UNIT: UNITS
     Route: 058
     Dates: start: 20050601
  2. OPTICLIK (INSULIN INJECTION PEN) [Suspect]
     Indication: DIABETES MELLITUS NON-INSULIN-DEPENDENT
     Dates: start: 20050801
  3. OPTICLIK (INSULIN INJECTION PEN) [Suspect]
  4. HUMALOG [Concomitant]
     Dosage: DOSE: SLIDING SCALE; FREQUENCY: BEFORE MEALS
     Route: 058
  5. TOPROL-XL [Concomitant]
     Dosage: DOSE: UNK
  6. HYZAAR [Concomitant]
     Dosage: DOSE: UNK
  7. LIPITOR [Concomitant]
     Dosage: DOSE: UNK
  8. ZOLOFT [Concomitant]
     Dosage: DOSE: UNK
  9. PLAVIX [Concomitant]
     Dosage: DOSE: UNK
  10. GLUCOTROL [Concomitant]
     Dosage: DOSE: UNK
  11. ASPIRIN [Concomitant]
     Dosage: DOSE: UNK
  12. TRICOR [Concomitant]
     Dosage: DOSE: UNK

REACTIONS (6)
  - BLOOD GLUCOSE INCREASED [None]
  - CORONARY ARTERY OCCLUSION [None]
  - DEVICE MALFUNCTION [None]
  - INJECTION SITE BRUISING [None]
  - INJECTION SITE EXTRAVASATION [None]
  - INJECTION SITE PAIN [None]
